FAERS Safety Report 21521670 (Version 1)
Quarter: 2022Q4

REPORT INFORMATION
  Report Type: Spontaneous
  Country: US (occurrence: US)
  Receive Date: 20221028
  Receipt Date: 20221028
  Transmission Date: 20230113
  Serious: No
  Sender: FDA-Public Use
  Company Number: US-009507513-2210USA004183

PATIENT
  Sex: Female
  Weight: 62.59 kg

DRUGS (9)
  1. PRINIVIL [Suspect]
     Active Substance: LISINOPRIL
     Route: 048
  2. POTASSIUM [Concomitant]
     Active Substance: POTASSIUM
  3. AMOXICILLIN [Concomitant]
     Active Substance: AMOXICILLIN
  4. PREDNISONE [Concomitant]
     Active Substance: PREDNISONE
  5. METOPROLOL [Concomitant]
     Active Substance: METOPROLOL
  6. CHOLECALCIFEROL [Concomitant]
     Active Substance: CHOLECALCIFEROL
  7. VITAMIN C [Concomitant]
     Active Substance: ASCORBIC ACID
  8. AMLODIPINE [Concomitant]
     Active Substance: AMLODIPINE BESYLATE
  9. ADVAIR HFA [Concomitant]
     Active Substance: FLUTICASONE PROPIONATE\SALMETEROL XINAFOATE

REACTIONS (1)
  - Drug hypersensitivity [Unknown]
